FAERS Safety Report 8172835-3 (Version None)
Quarter: 2012Q1

REPORT INFORMATION
  Report Type: 
  Country: None (occurrence: None)
  Receive Date: 20120223
  Receipt Date: 20120213
  Transmission Date: 20120608
  Serious: Yes (Life-Threatening, Hospitalization, Other)
  Sender: FDA-Public Use
  Company Number: AUR-APL-2010-01799

PATIENT
  Age: 75 Year
  Sex: Male

DRUGS (5)
  1. RAMIPRIL [Suspect]
     Indication: CARDIAC FAILURE
     Dosage: 10 MG (10 MG, 1 IN 1 D)
  2. METOPROLOL TARTRATE [Suspect]
     Indication: CARDIAC FAILURE
     Dosage: 100 MG (100 MG, 1 IN D)
  3. SPIRONOLACTONE [Suspect]
     Indication: CARDIAC FAILURE
     Dosage: 25 MG (25 MG, 1 IN1 D)
  4. BUMETANID (BUMETANIDE) [Concomitant]
  5. DIGITOXIN TAB [Concomitant]

REACTIONS (14)
  - GENERAL PHYSICAL HEALTH DETERIORATION [None]
  - HYPOTENSION [None]
  - HAEMODIALYSIS [None]
  - BUNDLE BRANCH BLOCK LEFT [None]
  - CONFUSIONAL STATE [None]
  - RENAL FAILURE ACUTE [None]
  - METABOLIC ACIDOSIS [None]
  - PULMONARY EMBOLISM [None]
  - DRUG INTERACTION [None]
  - CARDIOGENIC SHOCK [None]
  - SEPTIC SHOCK [None]
  - BRADYCARDIA [None]
  - HYPERKALAEMIA [None]
  - PERIPHERAL COLDNESS [None]
